FAERS Safety Report 15057771 (Version 1)
Quarter: 2018Q2

REPORT INFORMATION
  Report Type: Spontaneous
  Country: US (occurrence: US)
  Receive Date: 20180625
  Receipt Date: 20180625
  Transmission Date: 20180711
  Serious: No
  Sender: FDA-Public Use
  Company Number: US-GLENMARK PHARMACEUTICALS-2018GMK034884

PATIENT

DRUGS (8)
  1. CRESTOR [Concomitant]
     Active Substance: ROSUVASTATIN CALCIUM
     Indication: BLOOD CHOLESTEROL INCREASED
     Dosage: 10 MG, UNK
     Route: 065
  2. HYDROCHLOROTHIAZIDE. [Concomitant]
     Active Substance: HYDROCHLOROTHIAZIDE
     Indication: HYPERTENSION
     Dosage: 25 MG, UNK
     Route: 065
  3. LIDOCAINE. [Concomitant]
     Active Substance: LIDOCAINE
     Indication: NEUROPATHY PERIPHERAL
     Dosage: UNK, TID
     Route: 061
  4. NEXIUM [Concomitant]
     Active Substance: ESOMEPRAZOLE MAGNESIUM
     Indication: GASTROOESOPHAGEAL REFLUX DISEASE
     Dosage: 40 MG, UNK
     Route: 065
  5. CALCIPOTRIENE CREAM 0.005% [Suspect]
     Active Substance: CALCIPOTRIENE
     Indication: PSORIASIS
     Dosage: UNK UNK, TID
     Route: 061
     Dates: start: 20180220, end: 201803
  6. CALCIPOTRIENE CREAM 0.005% [Suspect]
     Active Substance: CALCIPOTRIENE
     Dosage: UNK UNK, BID (1ST WEEK OF MARCH)
     Route: 061
     Dates: start: 201803, end: 201803
  7. CALCIPOTRIENE CREAM 0.005% [Suspect]
     Active Substance: CALCIPOTRIENE
     Dosage: UNK UNK, ONCE OR TWICE A WEEK
     Route: 061
     Dates: start: 201803, end: 20180414
  8. NIVEA [Concomitant]
     Indication: PRODUCT USED FOR UNKNOWN INDICATION
     Dosage: UNK
     Route: 061

REACTIONS (6)
  - Skin exfoliation [Not Recovered/Not Resolved]
  - Disease recurrence [Unknown]
  - Skin discolouration [Not Recovered/Not Resolved]
  - Intentional product misuse [Unknown]
  - Psoriasis [Unknown]
  - Dry skin [Not Recovered/Not Resolved]

NARRATIVE: CASE EVENT DATE: 20180220
